FAERS Safety Report 5759580-6 (Version None)
Quarter: 2008Q2

REPORT INFORMATION
  Report Type: 
  Country: None (occurrence: None)
  Receive Date: 20080605
  Receipt Date: 20080602
  Transmission Date: 20081010
  Serious: Yes (Other)
  Sender: FDA-Public Use
  Company Number: JP-ASTRAZENECA-2008AP03695

PATIENT
  Age: 92 Year
  Sex: Male

DRUGS (14)
  1. MEROPENEM [Suspect]
     Indication: PNEUMONIA
     Route: 042
     Dates: start: 20080217, end: 20080225
  2. VANCOMYCIN HYDROCHLORIDE [Suspect]
     Indication: PNEUMONIA
     Route: 042
     Dates: start: 20080214, end: 20080216
  3. VANCOMYCIN HYDROCHLORIDE [Suspect]
     Route: 042
     Dates: start: 20080218, end: 20080220
  4. TARGOCID [Suspect]
     Indication: PNEUMONIA
     Route: 042
     Dates: start: 20080221, end: 20080221
  5. TARGOCID [Suspect]
     Route: 042
     Dates: start: 20080222, end: 20080222
  6. TARGOCID [Suspect]
     Route: 042
     Dates: start: 20080223, end: 20080223
  7. PN TWIN NO.2 [Concomitant]
     Indication: PARENTERAL NUTRITION
     Route: 042
     Dates: start: 20071229, end: 20080227
  8. VITAJECT [Concomitant]
     Indication: PARENTERAL NUTRITION
     Route: 042
     Dates: start: 20071229, end: 20080327
  9. INTRALIPOS 10% [Concomitant]
     Indication: PARENTERAL NUTRITION
     Route: 042
     Dates: start: 20080115, end: 20080320
  10. NORVASC [Concomitant]
     Indication: HYPERTENSION
     Route: 048
     Dates: start: 20080205, end: 20080228
  11. ARICEPT [Concomitant]
     Indication: COGNITIVE DISORDER
     Route: 048
     Dates: start: 20080205, end: 20080313
  12. FESIN [Concomitant]
     Indication: HAEMOGLOBIN DECREASED
     Route: 042
     Dates: start: 20080212, end: 20080313
  13. LANSOPRAZOLE [Concomitant]
     Indication: GASTRIC ULCER
     Route: 048
     Dates: start: 20080212, end: 20080307
  14. FLUCARD [Concomitant]
     Indication: PNEUMONIA
     Route: 042
     Dates: start: 20080218, end: 20080303

REACTIONS (1)
  - RENAL DISORDER [None]
